FAERS Safety Report 5872851-8 (Version None)
Quarter: 2008Q3

REPORT INFORMATION
  Report Type: 
  Country: None (occurrence: None)
  Receive Date: 20080905
  Receipt Date: 20080826
  Transmission Date: 20090109
  Serious: Yes (Life-Threatening, Other)
  Sender: FDA-Public Use
  Company Number: EG-PFIZER INC-2008071204

PATIENT
  Age: 54 Year
  Sex: Female

DRUGS (5)
  1. CEFOBID IV [Suspect]
     Indication: ANTIBIOTIC PROPHYLAXIS
     Route: 042
     Dates: start: 20080818, end: 20080818
  2. DICYNONE [Concomitant]
     Route: 042
     Dates: start: 20080816, end: 20080823
  3. CEFATREXYL [Concomitant]
     Route: 042
     Dates: start: 20080816, end: 20080823
  4. METRONIDAZOLE [Concomitant]
     Route: 042
     Dates: start: 20080816, end: 20080823
  5. HEXAMINE/KHELLIN/PIPERAZINE [Concomitant]
     Route: 048
     Dates: start: 20080816, end: 20080823

REACTIONS (5)
  - DRUG ADMINISTRATION ERROR [None]
  - DYSPNOEA [None]
  - HYPERSENSITIVITY [None]
  - HYPOTENSION [None]
  - LOSS OF CONSCIOUSNESS [None]
